FAERS Safety Report 22898297 (Version 2)
Quarter: 2024Q2

REPORT INFORMATION
  Report Type: Spontaneous
  Country: JP (occurrence: JP)
  Receive Date: 20230903
  Receipt Date: 20240520
  Transmission Date: 20240716
  Serious: Yes (Other)
  Sender: FDA-Public Use
  Company Number: JP-ASTELLAS-2023JP009832

PATIENT
  Age: 81 Year
  Sex: Male
  Weight: 61 kg

DRUGS (14)
  1. LINZESS [Suspect]
     Active Substance: LINACLOTIDE
     Indication: Constipation
     Dosage: 1 DF, UNKNOWN FREQ.   THERAPY DATE 2023
     Route: 048
     Dates: start: 20230519
  2. LINZESS [Suspect]
     Active Substance: LINACLOTIDE
     Indication: Constipation
     Dosage: TIME INTERVAL: 1 AS NECESSARY: 1 DOSAGE FORM, PRN THERAPY DATE 2023
     Route: 048
     Dates: start: 20230310
  3. LINZESS [Suspect]
     Active Substance: LINACLOTIDE
     Indication: Constipation
     Dosage: 2 DF, SELF-ADJUSTABLE, UNKNOWN FREQ.  THERAPY DATE 2023
     Route: 048
     Dates: start: 20230609
  4. LINZESS [Suspect]
     Active Substance: LINACLOTIDE
     Indication: Constipation
     Dosage: 2 DF, ONCE DAILY, BEFORE BREAKFAST THERAPY DATE 2023
     Route: 048
     Dates: start: 20230421
  5. CARVEDILOL [Concomitant]
     Active Substance: CARVEDILOL
     Indication: Product used for unknown indication
     Dosage: UNKNOWN, UNKNOWN, UNKNOWN FREQ., ADMINISTERED FOR MORE THAN 1 YEAR
     Route: 065
  6. LOCHOL [Concomitant]
     Indication: Product used for unknown indication
     Dosage: UNKNOWN, UNKNOWN, UNKNOWN FREQ., ADMINISTERED FOR MORE THAN 1 YEAR
     Route: 065
  7. MAGNESIUM OXIDE [Concomitant]
     Active Substance: MAGNESIUM OXIDE
     Indication: Product used for unknown indication
     Dosage: UNKNOWN, UNKNOWN, UNKNOWN FREQ., ADMINISTERED FOR MORE THAN 1 YEAR
     Route: 065
  8. AMITIZA [Concomitant]
     Active Substance: LUBIPROSTONE
     Indication: Product used for unknown indication
     Dosage: UNKNOWN UNKNOWN, UNKNOWN FREQ., ADMINISTERED FOR ABOUT HALF A YEAR
     Route: 065
  9. VIMPAT [Concomitant]
     Active Substance: LACOSAMIDE
     Indication: Product used for unknown indication
     Dosage: UNKNOWN, UNKNOWN, UNKNOWN FREQ., ADMINISTERED FOR ABOUT HALF A YEAR
     Route: 065
  10. ELOBIXIBAT [Concomitant]
     Active Substance: ELOBIXIBAT
     Indication: Product used for unknown indication
     Dosage: UNK
     Route: 065
     Dates: end: 20230609
  11. VONOPRAZAN FUMARATE [Concomitant]
     Active Substance: VONOPRAZAN FUMARATE
     Indication: Product used for unknown indication
     Dosage: UNKNOWN, UNKNOWN, UNKNOWN FREQ., ADMINISTERED FOR ABOUT HALF A YEAR
     Route: 065
  12. AZILSARTAN KAMEDOXOMIL [Concomitant]
     Active Substance: AZILSARTAN KAMEDOXOMIL
     Indication: Product used for unknown indication
     Dosage: UNKNOWN, UNKNOWN, UNKNOWN FREQ., ADMINISTERED FOR ABOUT HALF A YEAR
     Route: 065
     Dates: end: 20230609
  13. NIFEDIPINE CR SANWA [Concomitant]
     Indication: Product used for unknown indication
     Dosage: UNKNOWN, UNKNOWN, UNKNOWN FREQ., ADMINISTERED FOR ABOUT HALF A YEAR
     Route: 065
  14. NAFTOPIDIL [Concomitant]
     Active Substance: NAFTOPIDIL
     Indication: Product used for unknown indication
     Dosage: UNKNOWN, UNKNOWN, UNKNOWN FREQ., ADMINISTERED FOR MORE THAN 1 YEAR
     Route: 065

REACTIONS (3)
  - Blood pressure decreased [Recovered/Resolved]
  - Loss of consciousness [Recovered/Resolved]
  - Product use issue [Unknown]

NARRATIVE: CASE EVENT DATE: 20230310
